FAERS Safety Report 15577478 (Version 2)
Quarter: 2018Q4

REPORT INFORMATION
  Report Type: Spontaneous
  Country: JP (occurrence: JP)
  Receive Date: 20181102
  Receipt Date: 20181113
  Transmission Date: 20190205
  Serious: Yes (Other)
  Sender: FDA-Public Use
  Company Number: JP-TEVA-2018-JP-005912J

PATIENT
  Age: 12 Year
  Sex: Male

DRUGS (5)
  1. CALONAL [Suspect]
     Active Substance: ACETAMINOPHEN
     Indication: MIGRAINE
     Route: 048
     Dates: start: 20181024, end: 20181026
  2. TSUMURA GOREISAN EXTRACT GRANULES [Suspect]
     Active Substance: HERBALS
     Indication: MIGRAINE
     Route: 048
     Dates: start: 20181024, end: 20181026
  3. IBUPROFEN TABLET 200MG ^TAIYO^ [Suspect]
     Active Substance: IBUPROFEN
     Indication: MIGRAINE
     Dosage: 200 MILLIGRAM DAILY;
     Route: 048
     Dates: start: 20181024, end: 20181026
  4. DOMPERIDONE [Suspect]
     Active Substance: DOMPERIDONE
     Indication: MIGRAINE
     Route: 048
     Dates: start: 20181024, end: 20181026
  5. TSUMURA KEISHIBUKURYOGAN EXTRACT GRANULES [Suspect]
     Active Substance: HERBALS
     Indication: MIGRAINE
     Dosage: 2.5 GRAM DAILY;  FOR ETHICAL USE
     Route: 048
     Dates: start: 20181024, end: 20181026

REACTIONS (4)
  - Loss of consciousness [Recovered/Resolved]
  - Product use in unapproved indication [Unknown]
  - Headache [Recovered/Resolved]
  - Fall [Recovered/Resolved]

NARRATIVE: CASE EVENT DATE: 20181026
